FAERS Safety Report 4932683-1 (Version None)
Quarter: 2006Q1

REPORT INFORMATION
  Report Type: 
  Country: None (occurrence: None)
  Receive Date: 20060301
  Receipt Date: 20060220
  Transmission Date: 20060701
  Serious: Yes (Hospitalization)
  Sender: FDA-Public Use
  Company Number: 200610725GDS

PATIENT
  Age: 78 Year
  Sex: Female

DRUGS (7)
  1. ASPIRIN [Suspect]
     Dosage: 100 MG TOTAL DAILY ORAL
     Route: 048
  2. GLICLAZIDE [Suspect]
     Indication: DIABETES MELLITUS NON-INSULIN-DEPENDENT
     Dosage: 80 MG QID ORAL
     Route: 048
     Dates: end: 20060201
  3. METFORMIN [Suspect]
     Indication: DIABETES MELLITUS NON-INSULIN-DEPENDENT
     Dosage: 500 MG TID ORAL
     Route: 048
     Dates: end: 20060201
  4. ATENOLOL [Suspect]
     Indication: HYPERTENSION
     Dosage: 25 MG TOTAL DAILY ORAL
     Route: 048
  5. DIGOXIN [Concomitant]
  6. TORSEMIDE [Concomitant]
  7. PRAVASTATIN [Concomitant]

REACTIONS (2)
  - CONFUSIONAL STATE [None]
  - HYPOGLYCAEMIA [None]
